FAERS Safety Report 21182892 (Version 1)
Quarter: 2022Q3

REPORT INFORMATION
  Report Type: Spontaneous
  Country: JP (occurrence: JP)
  Receive Date: 20220808
  Receipt Date: 20220808
  Transmission Date: 20221026
  Serious: Yes (Other)
  Sender: FDA-Public Use
  Company Number: JP-NOVOPROD-941677

PATIENT
  Sex: Male
  Weight: 3.9 kg

DRUGS (3)
  1. TRESIBA [Suspect]
     Active Substance: INSULIN DEGLUDEC
     Indication: Type 1 diabetes mellitus
     Dosage: UNK
     Route: 064
  2. NOVORAPID [Suspect]
     Active Substance: INSULIN ASPART
     Indication: Type 1 diabetes mellitus
     Dosage: UNK
     Route: 064
  3. LEVEMIR [Suspect]
     Active Substance: INSULIN DETEMIR
     Indication: Type 1 diabetes mellitus
     Dosage: UNK
     Route: 064

REACTIONS (5)
  - Neonatal respiratory distress syndrome [Recovered/Resolved]
  - Hypoglycaemia neonatal [Recovered/Resolved]
  - Neonatal hypocalcaemia [Recovered/Resolved]
  - Neonatal hyponatraemia [Recovered/Resolved]
  - Foetal exposure during pregnancy [Recovered/Resolved]
